FAERS Safety Report 9784740 (Version 2)
Quarter: 2014Q1

REPORT INFORMATION
  Report Type: Report from Study
  Country: US (occurrence: US)
  Receive Date: 20131227
  Receipt Date: 20140203
  Transmission Date: 20141002
  Serious: Yes (Death)
  Sender: FDA-Public Use
  Company Number: US-ROCHE-1326228

PATIENT
  Age: 67 Year
  Sex: Male

DRUGS (1)
  1. VALCYTE [Suspect]
     Indication: HEART TRANSPLANT
     Route: 048

REACTIONS (3)
  - Heart transplant rejection [Fatal]
  - Cardiac failure [Fatal]
  - Cardiac failure congestive [Fatal]
